FAERS Safety Report 6559269-X (Version None)
Quarter: 2010Q1

REPORT INFORMATION
  Report Type: 
  Country: None (occurrence: None)
  Receive Date: 20100129
  Receipt Date: 20090922
  Transmission Date: 20100710
  Serious: No
  Sender: FDA-Public Use
  Company Number: US-ABBOTT-09P-163-0584184-00

PATIENT
  Sex: Male
  Weight: 99.88 kg

DRUGS (5)
  1. HUMIRA [Suspect]
     Indication: PSORIASIS
     Dates: start: 20090619, end: 20090619
  2. HUMIRA [Suspect]
     Dates: start: 20090710
  3. HUMIRA [Suspect]
     Dates: start: 20090801
  4. TOPROL-XL [Concomitant]
     Indication: HYPERTENSION
  5. SIMVASTATIN [Concomitant]
     Indication: BLOOD CHOLESTEROL INCREASED

REACTIONS (6)
  - ARTHRALGIA [None]
  - FAECES DISCOLOURED [None]
  - HAEMATOCHEZIA [None]
  - MOBILITY DECREASED [None]
  - PAIN [None]
  - PSORIASIS [None]
